FAERS Safety Report 9668586 (Version 3)
Quarter: 2014Q2

REPORT INFORMATION
  Report Type: Report from Study
  Country: CA (occurrence: CA)
  Receive Date: 20131105
  Receipt Date: 20140630
  Transmission Date: 20141212
  Serious: Yes (Hospitalization)
  Sender: FDA-Public Use
  Company Number: CA-JNJFOC-20130317871

PATIENT
  Age: 33 Year
  Sex: Female
  Weight: 58 kg

DRUGS (7)
  1. REMICADE [Suspect]
     Indication: CROHN^S DISEASE
     Route: 042
     Dates: start: 200910
  2. REMICADE [Suspect]
     Indication: CROHN^S DISEASE
     Route: 042
     Dates: start: 2009
  3. REMICADE [Suspect]
     Indication: CROHN^S DISEASE
     Dosage: 6 VIALS
     Route: 042
  4. REMICADE [Suspect]
     Indication: COLITIS ULCERATIVE
     Route: 042
     Dates: start: 200910
  5. REMICADE [Suspect]
     Indication: COLITIS ULCERATIVE
     Route: 042
     Dates: start: 2009
  6. REMICADE [Suspect]
     Indication: COLITIS ULCERATIVE
     Dosage: 6 VIALS
     Route: 042
  7. VITAMIN [Concomitant]
     Route: 065

REACTIONS (1)
  - Exposure during pregnancy [Recovered/Resolved]
